FAERS Safety Report 11647683 (Version 1)
Quarter: 2015Q4

REPORT INFORMATION
  Report Type: Spontaneous
  Country: FR (occurrence: FR)
  Receive Date: 20151021
  Receipt Date: 20151021
  Transmission Date: 20160304
  Serious: Yes (Other)
  Sender: FDA-Public Use
  Company Number: FR-009507513-1510FRA008413

PATIENT
  Age: 57 Year
  Sex: Male

DRUGS (11)
  1. INEXIUM (ESOMEPRAZOLE MAGNESIUM) [Suspect]
     Active Substance: ESOMEPRAZOLE MAGNESIUM
     Indication: GASTRIC DISORDER
     Dosage: 1 DF, QD
     Route: 048
  2. RIFADIN [Concomitant]
     Active Substance: RIFAMPIN
  3. CANCIDAS [Suspect]
     Active Substance: CASPOFUNGIN ACETATE
     Indication: CANDIDA SEPSIS
     Dosage: 1 DF, QD
     Route: 042
     Dates: start: 20150803, end: 20150819
  4. SEROPLEX [Suspect]
     Active Substance: ESCITALOPRAM OXALATE
     Dosage: 1 DF, QD
     Route: 048
     Dates: start: 20150814, end: 20150828
  5. VANCOMYCIN [Concomitant]
     Active Substance: VANCOMYCIN
  6. ANCOTIL [Suspect]
     Active Substance: FLUCYTOSINE
     Indication: CANDIDA SEPSIS
     Dosage: UNK
     Route: 042
     Dates: start: 20150819, end: 20150831
  7. ZYVOXID [Concomitant]
     Active Substance: LINEZOLID
  8. SEROPLEX [Concomitant]
     Active Substance: ESCITALOPRAM OXALATE
  9. FLUCONAZOLE. [Suspect]
     Active Substance: FLUCONAZOLE
     Dosage: 800 MG, QD
     Route: 042
     Dates: start: 20150819, end: 20150904
  10. IMIPENEM [Suspect]
     Active Substance: IMIPENEM
     Dosage: UNK
     Route: 042
     Dates: start: 20150817, end: 20150901
  11. AMIKACIN [Concomitant]
     Active Substance: AMIKACIN

REACTIONS (1)
  - Pancytopenia [Recovering/Resolving]

NARRATIVE: CASE EVENT DATE: 20150820
